FAERS Safety Report 7238503-7 (Version None)
Quarter: 2011Q1

REPORT INFORMATION
  Report Type: 
  Country: None (occurrence: None)
  Receive Date: 20110119
  Receipt Date: 20110119
  Transmission Date: 20110831
  Serious: Yes (Death, Life-Threatening, Hospitalization)
  Sender: FDA-Public Use
  Company Number: None

PATIENT
  Age: 63 Year
  Sex: Female

DRUGS (1)
  1. HUMULIN 70/30 PEN [Suspect]
     Indication: DIABETES MELLITUS
     Dosage: UNDER THE SKIN
     Dates: start: 20101106

REACTIONS (1)
  - HYPOGLYCAEMIA [None]
